FAERS Safety Report 23858088 (Version 1)
Quarter: 2024Q2

REPORT INFORMATION
  Report Type: Spontaneous
  Country: US (occurrence: None)
  Receive Date: 20240514
  Receipt Date: 20240514
  Transmission Date: 20240715
  Serious: Yes (Other)
  Sender: FDA-Public Use
  Company Number: None

PATIENT
  Age: 45 Year
  Sex: Male

DRUGS (2)
  1. LENALIDOMIDE [Suspect]
     Active Substance: LENALIDOMIDE
     Indication: Plasma cell myeloma
     Dosage: FREQUENCY : AS DIRECTED;?
  2. RECLAST [Suspect]
     Active Substance: ZOLEDRONIC ACID

REACTIONS (2)
  - Eye pain [None]
  - Eye swelling [None]

NARRATIVE: CASE EVENT DATE: 20240514
